FAERS Safety Report 9646050 (Version 1)
Quarter: 2013Q4

REPORT INFORMATION
  Report Type: Spontaneous
  Country: US (occurrence: None)
  Receive Date: 20131023
  Receipt Date: 20131023
  Transmission Date: 20140711
  Serious: Yes (Hospitalization, Other)
  Sender: FDA-Public Use
  Company Number: 2013US00727

PATIENT
  Age: 23 Year
  Sex: Male

DRUGS (1)
  1. LAMOTRIGINE [Suspect]

REACTIONS (12)
  - Toxicity to various agents [None]
  - Grand mal convulsion [None]
  - Blood pressure decreased [None]
  - Heart rate increased [None]
  - Blood pressure increased [None]
  - Lethargy [None]
  - Myoclonus [None]
  - Agitation [None]
  - Coma [None]
  - Anxiety [None]
  - Ataxia [None]
  - Delirium [None]
